APPROVED DRUG PRODUCT: LACTULOSE
Active Ingredient: LACTULOSE
Strength: 10GM/15ML
Dosage Form/Route: SOLUTION;ORAL
Application: A071841 | Product #001
Applicant: MORTON GROVE PHARMACEUTICALS INC
Approved: Sep 22, 1988 | RLD: No | RS: No | Type: DISCN